FAERS Safety Report 21526504 (Version 2)
Quarter: 2022Q4

REPORT INFORMATION
  Report Type: Spontaneous
  Country: JP (occurrence: JP)
  Receive Date: 20221031
  Receipt Date: 20221107
  Transmission Date: 20230113
  Serious: Yes (Other)
  Sender: FDA-Public Use
  Company Number: JP-SA-2022SA435185

PATIENT
  Age: 74 Year
  Sex: Male

DRUGS (2)
  1. DOCETAXEL [Suspect]
     Active Substance: DOCETAXEL
     Indication: Prostate cancer recurrent
     Dosage: RESUMED
     Route: 065
  2. DOCETAXEL [Suspect]
     Active Substance: DOCETAXEL
     Indication: Metastases to lung
     Dosage: UNK
     Route: 065

REACTIONS (1)
  - Neuropathy peripheral [Unknown]
